FAERS Safety Report 17123902 (Version 1)
Quarter: 2019Q4

REPORT INFORMATION
  Report Type: Report from Study
  Country: IT (occurrence: IT)
  Receive Date: 20191206
  Receipt Date: 20191206
  Transmission Date: 20200122
  Serious: Yes (Hospitalization)
  Sender: FDA-Public Use
  Company Number: IT-PFIZER INC-2019527739

PATIENT
  Age: 40 Year
  Sex: Female

DRUGS (2)
  1. QUETIAPINE. [Suspect]
     Active Substance: QUETIAPINE
     Indication: SUICIDAL BEHAVIOUR
     Dosage: 4 G, UNK
     Route: 048
     Dates: start: 20191030, end: 20191030
  2. LORAZEPAM. [Suspect]
     Active Substance: LORAZEPAM
     Indication: SUICIDAL BEHAVIOUR
     Dosage: 40 MG, UNK
     Route: 048
     Dates: start: 20191029, end: 20191029

REACTIONS (4)
  - Sopor [Recovering/Resolving]
  - Overdose [Unknown]
  - Suicidal behaviour [Recovering/Resolving]
  - Drug abuse [Recovering/Resolving]

NARRATIVE: CASE EVENT DATE: 20191029
